FAERS Safety Report 4347874-0 (Version None)
Quarter: 2004Q2

REPORT INFORMATION
  Report Type: 
  Country: None (occurrence: None)
  Receive Date: 20040422
  Receipt Date: 20040405
  Transmission Date: 20050107
  Serious: Yes (Death, Hospitalization)
  Sender: FDA-Public Use
  Company Number: ATO-04-0197

PATIENT
  Age: 71 Year
  Sex: Male
  Weight: 59 kg

DRUGS (8)
  1. TRISENOX [Suspect]
     Indication: MULTIPLE MYELOMA
     Dosage: 8.85 MG (0.15 MG/KG, 2X/WK), IVI
     Dates: start: 20040210, end: 20040220
  2. ATENOLOL [Concomitant]
  3. WARFARIN SODIUM [Concomitant]
  4. OXYCONTIN [Concomitant]
  5. MULTIVITAMIN [Concomitant]
  6. ZOMETA [Concomitant]
  7. EPOGEN [Concomitant]
  8. VIOXX [Concomitant]

REACTIONS (13)
  - ASTHENIA [None]
  - CEREBROVASCULAR ACCIDENT [None]
  - CONFUSIONAL STATE [None]
  - DISEASE PROGRESSION [None]
  - DYSPHAGIA [None]
  - FACIAL PALSY [None]
  - GENERAL PHYSICAL HEALTH DETERIORATION [None]
  - HYPERCALCAEMIA [None]
  - INJURY [None]
  - LACERATION [None]
  - MENTAL STATUS CHANGES [None]
  - PYREXIA [None]
  - REFUSAL OF TREATMENT BY RELATIVE [None]
